FAERS Safety Report 5003912-3 (Version None)
Quarter: 2006Q2

REPORT INFORMATION
  Report Type: 
  Country: None (occurrence: None)
  Receive Date: 20060517
  Receipt Date: 20060303
  Transmission Date: 20061013
  Serious: Yes (Life-Threatening)
  Sender: FDA-Public Use
  Company Number: US-ROCHE-439052

PATIENT
  Age: 39 Year
  Sex: Male
  Weight: 97.5 kg

DRUGS (4)
  1. PEG-INTERFERON ALFA 2A (RO 25-8310) [Suspect]
     Route: 058
     Dates: start: 20051213, end: 20060302
  2. PEG-INTERFERON ALFA 2A (RO 25-8310) [Suspect]
     Route: 058
     Dates: start: 20060321
  3. RIBAVIRIN [Suspect]
     Route: 048
     Dates: start: 20051213, end: 20060302
  4. RIBAVIRIN [Suspect]
     Route: 048
     Dates: start: 20060321

REACTIONS (5)
  - BLOOD GLUCOSE INCREASED [None]
  - DEEP VEIN THROMBOSIS [None]
  - HAEMOGLOBIN DECREASED [None]
  - LOWER LIMB FRACTURE [None]
  - RED BLOOD CELL COUNT DECREASED [None]
